FAERS Safety Report 4949636-X (Version None)
Quarter: 2006Q1

REPORT INFORMATION
  Report Type: 
  Country: None (occurrence: None)
  Receive Date: 20060316
  Receipt Date: 20060309
  Transmission Date: 20060701
  Serious: Yes (Death, Life-Threatening)
  Sender: FDA-Public Use
  Company Number: 0601-054

PATIENT
  Age: 69 Year
  Sex: Male
  Weight: 81.6475 kg

DRUGS (2)
  1. DUONEB [Suspect]
     Indication: ASTHMA
     Dosage: SEVERAL X DAILY-NEBULIZER
     Dates: start: 20040101, end: 20051220
  2. ALBUTEROL [Concomitant]

REACTIONS (7)
  - ANAPHYLACTIC REACTION [None]
  - CYANOSIS [None]
  - DEVICE FAILURE [None]
  - RASH [None]
  - RESPIRATORY ARREST [None]
  - RESPIRATORY FAILURE [None]
  - THERAPY NON-RESPONDER [None]
